FAERS Safety Report 7558031-9 (Version None)
Quarter: 2011Q2

REPORT INFORMATION
  Report Type: 
  Country: None (occurrence: None)
  Receive Date: 20110620
  Receipt Date: 20110608
  Transmission Date: 20111010
  Serious: Yes (Other)
  Sender: FDA-Public Use
  Company Number: PHHY2011HR50390

PATIENT
  Age: 28 Year
  Sex: Female
  Weight: 58 kg

DRUGS (2)
  1. OLANZAPINE [Suspect]
     Indication: SCHIZOPHRENIA
     Dosage: 10 MG, UNK
  2. ALPRAZOLAM [Suspect]
     Indication: SCHIZOPHRENIA
     Dosage: 1.5 MG, UNK

REACTIONS (3)
  - METABOLIC SYNDROME [None]
  - WEIGHT INCREASED [None]
  - HYPERTENSION [None]
